FAERS Safety Report 15459452 (Version 1)
Quarter: 2018Q3

REPORT INFORMATION
  Report Type: Spontaneous
  Country: US (occurrence: US)
  Receive Date: 20180928
  Receipt Date: 20180928
  Transmission Date: 20181010
  Serious: No
  Sender: FDA-Public Use
  Company Number: None

PATIENT
  Age: 66 Year
  Sex: Female

DRUGS (1)
  1. PROLIA [Suspect]
     Active Substance: DENOSUMAB
     Indication: SENILE OSTEOPOROSIS
     Dosage: Q 6 MONTHS
     Route: 058
     Dates: start: 20170221

REACTIONS (4)
  - Pain in jaw [None]
  - Alopecia [None]
  - Toothache [None]
  - Gingival pain [None]

NARRATIVE: CASE EVENT DATE: 20170221
